FAERS Safety Report 14103708 (Version 2)
Quarter: 2018Q1

REPORT INFORMATION
  Report Type: Report from Study
  Country: CH (occurrence: CH)
  Receive Date: 20171018
  Receipt Date: 20180111
  Transmission Date: 20180508
  Serious: Yes (Other)
  Sender: FDA-Public Use
  Company Number: PHHY2017CH126362

PATIENT
  Sex: Male
  Weight: 94 kg

DRUGS (11)
  1. CITALOPRAM [Suspect]
     Active Substance: CITALOPRAM HYDROBROMIDE
     Indication: DEPRESSION
     Dosage: 30 MG, UNK
     Route: 065
  2. AMITRIPTYLIN NEURAXPHARM [Concomitant]
     Active Substance: AMITRIPTYLINE
     Indication: RESPIRATORY DISORDER
     Dosage: 50 MG, UNK
  3. AMITRIPTYLIN NEURAXPHARM [Concomitant]
     Active Substance: AMITRIPTYLINE
     Dosage: 30 MG, QD
     Route: 048
     Dates: start: 20171121
  4. TORASEMIDE SANDOZ [Suspect]
     Active Substance: TORSEMIDE
     Indication: POLYURIA
     Dosage: 10 MG, QD
     Route: 048
     Dates: start: 20170701
  5. MADOPAR [Concomitant]
     Active Substance: BENSERAZIDE HYDROCHLORIDE\LEVODOPA
     Indication: PARKINSON^S DISEASE
     Dosage: 125 MG, QID
     Route: 048
  6. AMITRIPTYLIN NEURAXPHARM [Concomitant]
     Active Substance: AMITRIPTYLINE
     Indication: TREMOR
     Dosage: 40 MG, QD
     Route: 048
     Dates: start: 20170925
  7. CITALOPRAM [Suspect]
     Active Substance: CITALOPRAM HYDROBROMIDE
     Indication: PARKINSON^S DISEASE
     Dosage: 40 MG, UNK
     Route: 048
     Dates: start: 20160313, end: 20170803
  8. CITALOPRAM [Suspect]
     Active Substance: CITALOPRAM HYDROBROMIDE
     Dosage: 20 MG, UNK
     Route: 048
     Dates: start: 20170803, end: 20171006
  9. PRADAXA [Concomitant]
     Active Substance: DABIGATRAN ETEXILATE MESYLATE
     Indication: ANTICOAGULANT THERAPY
     Dosage: 150 MG, UNK
     Route: 048
     Dates: start: 20170115
  10. ELTROXIN [Concomitant]
     Active Substance: LEVOTHYROXINE
     Indication: THYROID DISORDER
     Dosage: UNK
     Route: 048
     Dates: start: 20170101
  11. MADOPAR DR [Concomitant]
     Indication: PARKINSON^S DISEASE
     Dosage: 250 MG, UNK
     Route: 048
     Dates: start: 20171130

REACTIONS (16)
  - Tremor [Recovering/Resolving]
  - Oedema [Unknown]
  - Weight increased [Not Recovered/Not Resolved]
  - Dry mouth [Not Recovered/Not Resolved]
  - Increased appetite [Not Recovered/Not Resolved]
  - Diplopia [Unknown]
  - Fatigue [Recovering/Resolving]
  - Dizziness [Recovering/Resolving]
  - Respiratory distress [Recovering/Resolving]
  - Vision blurred [Unknown]
  - Constipation [Recovering/Resolving]
  - Limb injury [Unknown]
  - Angina pectoris [Unknown]
  - Parkinson^s disease [Recovering/Resolving]
  - Poor quality sleep [Not Recovered/Not Resolved]
  - Balance disorder [Recovering/Resolving]

NARRATIVE: CASE EVENT DATE: 20170802
